FAERS Safety Report 15678791 (Version 1)
Quarter: 2018Q4

REPORT INFORMATION
  Report Type: Spontaneous
  Country: FR (occurrence: FR)
  Receive Date: 20181202
  Receipt Date: 20181202
  Transmission Date: 20190205
  Serious: Yes (Hospitalization)
  Sender: FDA-Public Use
  Company Number: FR-ASTRAZENECA-2018SF56143

PATIENT
  Age: 53 Year
  Sex: Male
  Weight: 61 kg

DRUGS (1)
  1. DURVALUMAB. [Suspect]
     Active Substance: DURVALUMAB
     Indication: BRONCHIAL CARCINOMA
     Dosage: 10.0MG/KG UNKNOWN
     Route: 042
     Dates: start: 20180718, end: 20181009

REACTIONS (5)
  - Diarrhoea [Recovered/Resolved]
  - Weight decreased [Recovered/Resolved]
  - Pancreatitis [Recovering/Resolving]
  - General physical health deterioration [Recovered/Resolved]
  - Vomiting [Recovered/Resolved]

NARRATIVE: CASE EVENT DATE: 20181023
